FAERS Safety Report 11928383 (Version 1)
Quarter: 2016Q1

REPORT INFORMATION
  Report Type: Spontaneous
  Country: CZ (occurrence: CZ)
  Receive Date: 20160119
  Receipt Date: 20160119
  Transmission Date: 20160526
  Serious: Yes (Life-Threatening, Other)
  Sender: FDA-Public Use
  Company Number: CZ-PFIZER INC-2015112168

PATIENT
  Age: 45 Year
  Sex: Female

DRUGS (4)
  1. AGEN [Concomitant]
     Indication: HYPERTENSION
     Dosage: 10 UNKNOWN UNITS, 1X/DAY
     Route: 048
  2. PRENESSA 8 MG [Concomitant]
     Indication: HYPERTENSION
     Dosage: 8 MG, 1X/DAY
     Route: 048
  3. FRAXIPARINE [Suspect]
     Active Substance: NADROPARIN CALCIUM
     Indication: PROPHYLAXIS
     Dosage: 9500 UNITS, 1X/DAY
     Route: 051
     Dates: start: 20150307
  4. UNASYN [Suspect]
     Active Substance: AMPICILLIN SODIUM\SULBACTAM SODIUM
     Indication: INFLAMMATION
     Dosage: UNK UNK, 3X/DAY
     Route: 051
     Dates: start: 20150307, end: 20150307

REACTIONS (3)
  - Paraesthesia [Unknown]
  - Hypersensitivity [Unknown]
  - Oxygen saturation decreased [Unknown]

NARRATIVE: CASE EVENT DATE: 20150307
